FAERS Safety Report 22299904 (Version 2)
Quarter: 2023Q2

REPORT INFORMATION
  Report Type: Report from Study
  Country: US (occurrence: US)
  Receive Date: 20230509
  Receipt Date: 20230606
  Transmission Date: 20230721
  Serious: Yes (Other)
  Sender: FDA-Public Use
  Company Number: US-ABBVIE-4711924

PATIENT
  Sex: Male

DRUGS (1)
  1. IMBRUVICA [Suspect]
     Active Substance: IBRUTINIB
     Indication: Waldenstrom^s macroglobulinaemia
     Route: 048
     Dates: start: 202104

REACTIONS (5)
  - Heart rate decreased [Recovering/Resolving]
  - Hernia [Recovering/Resolving]
  - Pain [Unknown]
  - Adrenal adenoma [Recovering/Resolving]
  - Dysphagia [Unknown]
